FAERS Safety Report 10760853 (Version 1)
Quarter: 2015Q1

REPORT INFORMATION
  Report Type: Spontaneous
  Country: US (occurrence: None)
  Receive Date: 20150202
  Receipt Date: 20150202
  Transmission Date: 20150721
  Serious: Yes (Hospitalization)
  Sender: FDA-Public Use
  Company Number: US-H14001-15-00136

PATIENT
  Age: 58 Year
  Sex: Male

DRUGS (18)
  1. ACETAMINOPHEN (PARACETAMOL) [Concomitant]
     Active Substance: ACETAMINOPHEN
  2. FOLATE (FOLIC ACID) [Concomitant]
  3. WARFARIN SODIUM (WARFARIN SODIUM) [Concomitant]
     Active Substance: WARFARIN SODIUM
  4. MULTIVITAMINS (MULTIVITAMINS) [Concomitant]
     Active Substance: VITAMINS
  5. DILTIAZEM EXTENDED RELEASE (DILTIAZEM) [Concomitant]
  6. SENNOSIDES (SENNOSIDE A+B) [Concomitant]
  7. VITAMIN D3 [Concomitant]
     Active Substance: CHOLECALCIFEROL
  8. ZOFRAN (ONDANSETRON) [Concomitant]
  9. TH-302 [Suspect]
     Active Substance: EVOFOSFAMIDE
     Indication: PLASMA CELL MYELOMA
     Dosage: TOTAL DOSE OF 762 MG
     Route: 042
     Dates: start: 20130201
  10. COLACE (DOCUSATE SODIUIM) [Concomitant]
  11. HYDROMORPHONE HYDROCHLORIDE (HYDROMORPHONE HYDROCHLORIDE) [Concomitant]
  12. MAGNESIUM OXIDE (MAGNESIUM OXYDE) [Concomitant]
  13. VITAMIN C [Concomitant]
     Active Substance: ASCORBIC ACID
  14. TYLENOL [Concomitant]
     Active Substance: ACETAMINOPHEN
  15. DEXAMETHASONE  (DEXAMETHASONE SODIUM PHOSPHATE) (UNKNOWN) (DEXAMETHASONE SODIUM PHOSPHATE) [Suspect]
     Active Substance: DEXAMETHASONE
     Indication: PLASMA CELL MYELOMA
     Dosage: TOTAL DOSE OF 40 MG
     Route: 040
     Dates: start: 20130201
  16. CALCIUM CARBONATE (CALCIUM CARBONATE) [Concomitant]
  17. METOPROLOL SUCCINATE EXTENDED RELEASE (METOPROLOL SUCCINATE) [Concomitant]
  18. THIAMINE (THIAMINE) [Concomitant]
     Active Substance: THIAMINE

REACTIONS (11)
  - Atrial flutter [None]
  - Atrial fibrillation [None]
  - Fatigue [None]
  - Haemoglobin decreased [None]
  - Influenza A virus test positive [None]
  - Night sweats [None]
  - Pneumonia [None]
  - Alcohol abuse [None]
  - White blood cell count decreased [None]
  - Myalgia [None]
  - Haematocrit decreased [None]

NARRATIVE: CASE EVENT DATE: 201307
